FAERS Safety Report 17578672 (Version 1)
Quarter: 2020Q1

REPORT INFORMATION
  Report Type: Spontaneous
  Country: US (occurrence: US)
  Receive Date: 20200325
  Receipt Date: 20200325
  Transmission Date: 20200409
  Serious: No
  Sender: FDA-Public Use
  Company Number: US-TEVA-2020-US-1192846

PATIENT
  Sex: Male

DRUGS (1)
  1. METOPROLOL SUCCINATE ER ACTAVIS [Suspect]
     Active Substance: METOPROLOL SUCCINATE
     Dosage: 50MG EXTENDED RELEASE
     Route: 065

REACTIONS (5)
  - Anxiety [Unknown]
  - Adverse drug reaction [Unknown]
  - Heart rate increased [Unknown]
  - Headache [Unknown]
  - Dyspnoea [Unknown]
